FAERS Safety Report 10466152 (Version 1)
Quarter: 2014Q3

REPORT INFORMATION
  Report Type: Spontaneous
  Country: US (occurrence: None)
  Receive Date: 20140919
  Receipt Date: 20140919
  Transmission Date: 20150326
  Serious: Yes (Disabling)
  Sender: FDA-Public Use
  Company Number: None

PATIENT
  Age: 36 Year
  Sex: Female
  Weight: 74.84 kg

DRUGS (1)
  1. NUVARING [Suspect]
     Active Substance: ETHINYL ESTRADIOL\ETONOGESTREL
     Indication: OVARIAN CYST
     Route: 067
     Dates: start: 20140602, end: 20140918

REACTIONS (10)
  - Diarrhoea [None]
  - Feeling of despair [None]
  - Abdominal pain [None]
  - Cervix disorder [None]
  - Malaise [None]
  - Nausea [None]
  - Clostridium difficile infection [None]
  - Vomiting [None]
  - Impaired work ability [None]
  - Discomfort [None]

NARRATIVE: CASE EVENT DATE: 20140602
